FAERS Safety Report 10537694 (Version 1)
Quarter: 2014Q4

REPORT INFORMATION
  Report Type: Spontaneous
  Country: GB (occurrence: None)
  Receive Date: 20141021
  Receipt Date: 20141021
  Transmission Date: 20150529
  Serious: Yes (Hospitalization)
  Sender: FDA-Public Use
  Company Number: FK201404199

PATIENT
  Age: 67 Year
  Sex: Male

DRUGS (10)
  1. DEXAMETHASONE (DEXAMETHASONE) (DEXAMETHASONE) [Suspect]
     Active Substance: DEXAMETHASONE
     Indication: GASTRIC CANCER
     Route: 048
     Dates: start: 20120124, end: 20120309
  2. XELODA [Suspect]
     Active Substance: CAPECITABINE
     Indication: GASTRIC CANCER
     Route: 048
     Dates: start: 20120124, end: 20120327
  3. AVASTIN [Suspect]
     Active Substance: BEVACIZUMAB
     Indication: GASTRIC CANCER
     Dosage: NOT OTHERWISE SPECIFIED
     Route: 042
     Dates: start: 20120124, end: 20120306
  4. EPIRUBICIN (EPIRUBICIN) (EPIRUBICIN) [Suspect]
     Active Substance: EPIRUBICIN
     Indication: GASTRIC CANCER
     Dosage: NOT OTHERWISE SPECIFIED
     Route: 042
     Dates: start: 20120124, end: 20120306
  5. ONDANSETRON [Suspect]
     Active Substance: ONDANSETRON
     Indication: GASTRIC CANCER
     Route: 048
     Dates: start: 20120124, end: 20120309
  6. CISPLATIN (MANUFACTURER UNKNOWN) (CISPLATIN) (CISPLATIN) [Suspect]
     Active Substance: CISPLATIN
     Indication: GASTRIC CANCER
     Dosage: NOT OTHERWISE SPECIFIED
     Route: 042
     Dates: start: 20120124, end: 20120306
  7. LISINOPRIL (LISINOPRIL) [Concomitant]
     Active Substance: LISINOPRIL
  8. APREPITANT. [Suspect]
     Active Substance: APREPITANT
     Indication: GASTRIC CANCER
     Route: 048
     Dates: start: 20120124, end: 20120306
  9. FUROSEMIDE (FUROSEMIDE) (FUROSEMIDE) [Suspect]
     Active Substance: FUROSEMIDE
     Indication: GASTRIC CANCER
     Route: 048
     Dates: start: 20120124, end: 20120306
  10. SIMVASTATIN (SIMVASTATIN) [Concomitant]
     Active Substance: SIMVASTATIN

REACTIONS (5)
  - Abdominal sepsis [None]
  - Febrile neutropenia [None]
  - Hypotension [None]
  - Diarrhoea [None]
  - Vomiting [None]

NARRATIVE: CASE EVENT DATE: 20120518
